FAERS Safety Report 8338191-2 (Version None)
Quarter: 2012Q2

REPORT INFORMATION
  Report Type: 
  Country: None (occurrence: None)
  Receive Date: 20120504
  Receipt Date: 20120427
  Transmission Date: 20120825
  Serious: Yes (Other)
  Sender: FDA-Public Use
  Company Number: US-TEVA-335829USA

PATIENT
  Age: 45 Year
  Sex: Male

DRUGS (5)
  1. CYTARABINE [Suspect]
     Indication: ACUTE MYELOID LEUKAEMIA
     Route: 042
  2. FLUCONAZOLE [Suspect]
  3. PIPERACILLIN SODIUM [Suspect]
  4. ACYCLOVIR [Suspect]
  5. SPRYCEL [Suspect]
     Indication: ACUTE MYELOID LEUKAEMIA
     Route: 048
     Dates: start: 20111224

REACTIONS (2)
  - ELECTROCARDIOGRAM QT PROLONGED [None]
  - FEBRILE NEUTROPENIA [None]
